FAERS Safety Report 22531469 (Version 2)
Quarter: 2023Q2

REPORT INFORMATION
  Report Type: Spontaneous
  Country: IE (occurrence: IE)
  Receive Date: 20230607
  Receipt Date: 20230607
  Transmission Date: 20230721
  Serious: Yes (Other)
  Sender: FDA-Public Use
  Company Number: IE-ACERUSPHRM-2023-IE-000001

PATIENT
  Age: 28 Year
  Sex: Male

DRUGS (4)
  1. TESTOSTERONE [Suspect]
     Active Substance: TESTOSTERONE
     Indication: Primary hypogonadism
     Route: 030
  2. NEBIDO [Suspect]
     Active Substance: TESTOSTERONE UNDECANOATE
     Indication: Primary hypogonadism
  3. TESTOSTERONE [Suspect]
     Active Substance: TESTOSTERONE
     Indication: Primary hypogonadism
     Route: 061
  4. NEPAFENAC [Concomitant]
     Active Substance: NEPAFENAC
     Indication: Central serous chorioretinopathy

REACTIONS (1)
  - Central serous chorioretinopathy [Unknown]
